FAERS Safety Report 5960379-6 (Version None)
Quarter: 2008Q4

REPORT INFORMATION
  Report Type: 
  Country: None (occurrence: None)
  Receive Date: 20081112
  Receipt Date: 20081020
  Transmission Date: 20090506
  Serious: Yes (Hospitalization, Other)
  Sender: FDA-Public Use
  Company Number: GAM-205-08-FR

PATIENT
  Age: 67 Year
  Sex: Female

DRUGS (1)
  1. OCTAGAM [Suspect]
     Indication: SJOGREN'S SYNDROME
     Dosage: 35 G, IV
     Route: 042
     Dates: start: 20080912, end: 20080914

REACTIONS (1)
  - NEUTROPENIA [None]
